FAERS Safety Report 13624404 (Version 2)
Quarter: 2017Q2

REPORT INFORMATION
  Report Type: Report from Study
  Country: None (occurrence: IL)
  Receive Date: 20170608
  Receipt Date: 20170610
  Transmission Date: 20170830
  Serious: Yes (Hospitalization, Other)
  Sender: FDA-Public Use
  Company Number: IL-ABBVIE-17K-082-1996712-00

PATIENT
  Age: 23 Year
  Sex: Female

DRUGS (3)
  1. HUMIRA [Suspect]
     Active Substance: ADALIMUMAB
     Indication: CROHN^S DISEASE
     Route: 058
     Dates: start: 2017
  2. HUMIRA [Suspect]
     Active Substance: ADALIMUMAB
     Route: 058
     Dates: start: 2017, end: 2017
  3. HUMIRA [Suspect]
     Active Substance: ADALIMUMAB
     Indication: CROHN^S DISEASE
     Route: 058
     Dates: start: 20160403

REACTIONS (8)
  - Caesarean section [Unknown]
  - High risk pregnancy [Unknown]
  - Abasia [Unknown]
  - Vomiting [Unknown]
  - Exposure during pregnancy [Unknown]
  - Live birth [Unknown]
  - Crohn^s disease [Recovering/Resolving]
  - Amniorrhoea [Unknown]

NARRATIVE: CASE EVENT DATE: 2016
